FAERS Safety Report 24528604 (Version 1)
Quarter: 2024Q4

REPORT INFORMATION
  Report Type: Spontaneous
  Country: US (occurrence: None)
  Receive Date: 20241018
  Receipt Date: 20241018
  Transmission Date: 20250114
  Serious: Yes (Death)
  Sender: Public
  Company Number: None

PATIENT
  Age: 73 Year
  Sex: Male

DRUGS (11)
  1. REPATHA [Suspect]
     Active Substance: EVOLOCUMAB
     Indication: Hyperlipidaemia
     Dosage: FREQUENCY : EVERY OTHER WEEK;?
     Route: 058
     Dates: start: 20220705, end: 202410
  2. COMBIVENT [Concomitant]
  3. ELIQUIS [Concomitant]
  4. METOPROLOL [Concomitant]
  5. THEOPHYLLINE [Concomitant]
  6. PANTOPRAZOLE [Concomitant]
  7. PREGABALIN [Concomitant]
  8. ALBUTEROL [Concomitant]
  9. PIOGLITAZONE [Concomitant]
  10. ACYCLOVIR [Concomitant]
  11. FERROUS SULFATE [Concomitant]

REACTIONS (1)
  - Death [None]

NARRATIVE: CASE EVENT DATE: 20241001
